FAERS Safety Report 11989065 (Version 1)
Quarter: 2016Q1

REPORT INFORMATION
  Report Type: Spontaneous
  Country: US (occurrence: US)
  Receive Date: 20160202
  Receipt Date: 20160202
  Transmission Date: 20160526
  Serious: No
  Sender: FDA-Public Use
  Company Number: US-ABBVIE-15K-163-1342841-00

PATIENT
  Age: 65 Year
  Sex: Female
  Weight: 79.45 kg

DRUGS (10)
  1. ALLEGRA-D [Interacting]
     Active Substance: FEXOFENADINE\PSEUDOEPHEDRINE
     Indication: NASOPHARYNGITIS
     Route: 048
     Dates: start: 201501, end: 201501
  2. FOLIC ACID. [Concomitant]
     Active Substance: FOLIC ACID
     Indication: PRODUCT USED FOR UNKNOWN INDICATION
  3. HCTZ [Concomitant]
     Active Substance: HYDROCHLOROTHIAZIDE
     Indication: PRODUCT USED FOR UNKNOWN INDICATION
  4. XANAX [Concomitant]
     Active Substance: ALPRAZOLAM
     Indication: ANXIETY
  5. ZOLPIDEM [Concomitant]
     Active Substance: ZOLPIDEM\ZOLPIDEM TARTRATE
     Indication: PRODUCT USED FOR UNKNOWN INDICATION
  6. NEXIUM [Concomitant]
     Active Substance: ESOMEPRAZOLE MAGNESIUM
     Indication: PRODUCT USED FOR UNKNOWN INDICATION
  7. METHOTREXATE [Concomitant]
     Active Substance: METHOTREXATE
     Indication: PRODUCT USED FOR UNKNOWN INDICATION
  8. HUMIRA [Suspect]
     Active Substance: ADALIMUMAB
     Indication: RHEUMATOID ARTHRITIS
     Route: 065
     Dates: start: 201412
  9. CYMBALTA [Concomitant]
     Active Substance: DULOXETINE HYDROCHLORIDE
     Indication: ANXIETY
  10. METOPROLOL. [Concomitant]
     Active Substance: METOPROLOL
     Indication: PRODUCT USED FOR UNKNOWN INDICATION

REACTIONS (4)
  - Nasopharyngitis [Recovered/Resolved]
  - Rheumatoid arthritis [Recovered/Resolved]
  - Drug interaction [Unknown]
  - Confusional state [Recovered/Resolved]

NARRATIVE: CASE EVENT DATE: 201501
